FAERS Safety Report 6838128-9 (Version None)
Quarter: 2010Q3

REPORT INFORMATION
  Report Type: 
  Country: None (occurrence: None)
  Receive Date: 20100713
  Receipt Date: 20070531
  Transmission Date: 20110219
  Serious: No
  Sender: FDA-Public Use
  Company Number: US-PFIZER INC-2007045472

PATIENT
  Age: 59 Year
  Sex: Female
  Weight: 86.363 kg

DRUGS (2)
  1. CHANTIX [Suspect]
     Indication: SMOKING CESSATION THERAPY
     Dates: start: 20070526
  2. GABAPENTIN [Concomitant]

REACTIONS (2)
  - EXERCISE LACK OF [None]
  - PAIN [None]
